FAERS Safety Report 5825194-2 (Version None)
Quarter: 2008Q3

REPORT INFORMATION
  Report Type: 
  Country: None (occurrence: None)
  Receive Date: 20080729
  Receipt Date: 20080721
  Transmission Date: 20090109
  Serious: Yes (Hospitalization)
  Sender: FDA-Public Use
  Company Number: PHBS2008BR05179

PATIENT
  Age: 26 Year
  Sex: Female

DRUGS (2)
  1. FORMOTEROL FUMARATE [Suspect]
     Indication: ASTHMA
  2. BUDESONIDE [Suspect]

REACTIONS (18)
  - AMNIOCENTESIS [None]
  - ATRIAL SEPTAL DEFECT [None]
  - BREAST FEEDING [None]
  - BRONCHITIS [None]
  - CAESAREAN SECTION [None]
  - CLUBBING [None]
  - CYANOSIS [None]
  - DRUG EXPOSURE DURING PREGNANCY [None]
  - DYSPNOEA [None]
  - EISENMENGER'S SYNDROME [None]
  - HYPOPHONESIS [None]
  - MECONIUM ABNORMAL [None]
  - NORMAL NEWBORN [None]
  - OEDEMA PERIPHERAL [None]
  - POLYCYTHAEMIA [None]
  - PREMATURE BABY [None]
  - PULMONARY HYPERTENSION [None]
  - WEIGHT INCREASED [None]
